FAERS Safety Report 16197578 (Version 1)
Quarter: 2019Q2

REPORT INFORMATION
  Report Type: Spontaneous
  Country: US (occurrence: US)
  Receive Date: 20190414
  Receipt Date: 20190414
  Transmission Date: 20190711
  Serious: Yes (Other)
  Sender: FDA-Public Use
  Company Number: None

PATIENT
  Age: 59 Year
  Sex: Male
  Weight: 60.3 kg

DRUGS (2)
  1. TERBINAFINE. [Suspect]
     Active Substance: TERBINAFINE
     Indication: ONYCHOMYCOSIS
     Route: 048
     Dates: start: 20181117, end: 20190105
  2. TERBINAFINE. [Concomitant]
     Active Substance: TERBINAFINE
     Dates: start: 20181117, end: 20190105

REACTIONS (3)
  - Abdominal pain upper [None]
  - Liver function test increased [None]
  - Transaminases increased [None]

NARRATIVE: CASE EVENT DATE: 20190105
